FAERS Safety Report 4873049-2 (Version None)
Quarter: 2005Q4

REPORT INFORMATION
  Report Type: 
  Country: None (occurrence: None)
  Receive Date: 20051201
  Receipt Date: 20050815
  Transmission Date: 20060501
  Serious: No
  Sender: FDA-Public Use
  Company Number: 2005PV001230

PATIENT
  Age: 73 Year
  Sex: Female
  Weight: 108.8633 kg

DRUGS (17)
  1. BYETTA [Suspect]
     Indication: DIABETES MELLITUS NON-INSULIN-DEPENDENT
     Dosage: 5 MCG; TID; SC
     Route: 058
     Dates: start: 20050801
  2. PREVACID [Concomitant]
  3. LANTUS [Concomitant]
  4. HUMALOG [Concomitant]
  5. WARFARIN SODIUM [Concomitant]
  6. LIPITOR [Concomitant]
  7. GLUCOTROL [Concomitant]
  8. TYLENOL ES [Concomitant]
  9. TYLENOL (CAPLET) [Concomitant]
  10. NITROGLYCERIN [Concomitant]
  11. ZETIA [Concomitant]
  12. FUROSEMIDE [Concomitant]
  13. CAPTOPRIL [Concomitant]
  14. SPIRONOLACTONE [Concomitant]
  15. VITAMIN D [Concomitant]
  16. ASCORBIC ACID [Concomitant]
  17. VITAMIN E [Concomitant]

REACTIONS (4)
  - DECREASED APPETITE [None]
  - DYSGEUSIA [None]
  - DYSPEPSIA [None]
  - ERUCTATION [None]
